FAERS Safety Report 17360783 (Version 1)
Quarter: 2020Q1

REPORT INFORMATION
  Report Type: Spontaneous
  Country: DK (occurrence: DK)
  Receive Date: 20200203
  Receipt Date: 20200203
  Transmission Date: 20200409
  Serious: Yes (Other)
  Sender: FDA-Public Use
  Company Number: NVSC2020DK025619

PATIENT
  Sex: Female

DRUGS (3)
  1. AMLODIPIN SANDOZ [AMLODIPINE BESYLATE] [Suspect]
     Active Substance: AMLODIPINE BESYLATE
     Indication: HYPERTENSION
     Dosage: 5 MG, UNKNOWN
     Route: 065
     Dates: start: 201912
  2. CORDAN (FENDILINE HYDROCHLORIDE) [Concomitant]
     Active Substance: FENDILINE HYDROCHLORIDE
     Indication: PRODUCT USED FOR UNKNOWN INDICATION
     Dosage: 200 MG, QD
     Route: 065
  3. MAREVAN [Concomitant]
     Active Substance: WARFARIN SODIUM
     Indication: PRODUCT USED FOR UNKNOWN INDICATION
     Dosage: UNK (ACCORDING TO THE SCHEDULE)
     Route: 065

REACTIONS (3)
  - Hypoxia [Unknown]
  - Dyspnoea [Unknown]
  - Abdominal pain upper [Unknown]
